FAERS Safety Report 10074935 (Version 2)
Quarter: 2014Q2

REPORT INFORMATION
  Report Type: Spontaneous
  Country: DE (occurrence: DE)
  Receive Date: 20140414
  Receipt Date: 20140414
  Transmission Date: 20141212
  Serious: Yes (Other)
  Sender: FDA-Public Use
  Company Number: DE-009507513-1404DEU001377

PATIENT
  Age: 25 Year
  Sex: Female

DRUGS (3)
  1. NUVARING [Suspect]
     Indication: CONTRACEPTION
     Dosage: UNK
     Route: 067
     Dates: start: 20131214
  2. NUVARING [Suspect]
     Dosage: UNK
     Route: 067
     Dates: start: 20140111, end: 20140201
  3. NUVARING [Suspect]
     Dosage: UNK
     Route: 067
     Dates: start: 20140208, end: 20140301

REACTIONS (2)
  - Abortion induced [Unknown]
  - Unintended pregnancy [Recovered/Resolved]
